FAERS Safety Report 5905014-8 (Version None)
Quarter: 2008Q3

REPORT INFORMATION
  Report Type: 
  Country: None (occurrence: None)
  Receive Date: 20080909
  Receipt Date: 20080506
  Transmission Date: 20090109
  Serious: Yes (Hospitalization)
  Sender: FDA-Public Use
  Company Number: 163-20785-08030638

PATIENT
  Age: 45 Year
  Sex: Female
  Weight: 141.9305 kg

DRUGS (5)
  1. THALOMID [Suspect]
     Indication: SARCOIDOSIS
     Dosage: 800 MG, QD, ORAL ; 300 MG, QD, ORAL ; 800 MG, QD, ORAL ; 200 MG, QD, ORAL
     Route: 048
     Dates: start: 20071001
  2. THALOMID [Suspect]
     Indication: SARCOIDOSIS
     Dosage: 800 MG, QD, ORAL ; 300 MG, QD, ORAL ; 800 MG, QD, ORAL ; 200 MG, QD, ORAL
     Route: 048
     Dates: start: 20080115
  3. THALOMID [Suspect]
     Indication: SARCOIDOSIS
     Dosage: 800 MG, QD, ORAL ; 300 MG, QD, ORAL ; 800 MG, QD, ORAL ; 200 MG, QD, ORAL
     Route: 048
     Dates: start: 20080124
  4. THALOMID [Suspect]
     Indication: SARCOIDOSIS
     Dosage: 800 MG, QD, ORAL ; 300 MG, QD, ORAL ; 800 MG, QD, ORAL ; 200 MG, QD, ORAL
     Route: 048
     Dates: start: 20080211
  5. PREDNISONE [Concomitant]

REACTIONS (8)
  - ARTHRALGIA [None]
  - ARTHRITIS [None]
  - CELLULITIS [None]
  - FATIGUE [None]
  - GAIT DISTURBANCE [None]
  - INFECTION [None]
  - JOINT SWELLING [None]
  - OEDEMA PERIPHERAL [None]
